FAERS Safety Report 17290653 (Version 1)
Quarter: 2020Q1

REPORT INFORMATION
  Report Type: Spontaneous
  Country: DE (occurrence: DE)
  Receive Date: 20200121
  Receipt Date: 20200121
  Transmission Date: 20200409
  Serious: Yes (Other)
  Sender: FDA-Public Use
  Company Number: DE-TEVA-2020-DE-1165718

PATIENT
  Age: 72 Year
  Sex: Male

DRUGS (1)
  1. VALPROAT [Suspect]
     Active Substance: VALPROATE SODIUM
     Route: 065

REACTIONS (1)
  - Coma hepatic [Unknown]
